FAERS Safety Report 18654624 (Version 4)
Quarter: 2021Q1

REPORT INFORMATION
  Report Type: Report from Study
  Country: CA (occurrence: CA)
  Receive Date: 20201223
  Receipt Date: 20210209
  Transmission Date: 20210419
  Serious: Yes (Hospitalization, Other)
  Sender: FDA-Public Use
  Company Number: CA-GILEAD-2020-0510180

PATIENT
  Age: 29 Year
  Sex: Female

DRUGS (6)
  1. SOFOSBUVIR W/VELPATASVIR [Suspect]
     Active Substance: SOFOSBUVIR\VELPATASVIR
     Indication: CHRONIC HEPATITIS C
     Dosage: 1 DOSAGE FORM, QD FOR 84 DAYS
     Route: 048
     Dates: start: 20201210
  2. LORAZEPAM. [Concomitant]
     Active Substance: LORAZEPAM
  3. ZOPICLONE [Concomitant]
     Active Substance: ZOPICLONE
  4. METHYLPHENIDATE. [Concomitant]
     Active Substance: METHYLPHENIDATE
  5. PREGABALIN. [Concomitant]
     Active Substance: PREGABALIN
  6. METHADONE [Concomitant]
     Active Substance: METHADONE HYDROCHLORIDE

REACTIONS (6)
  - Illness [Recovered/Resolved]
  - Intentional dose omission [Unknown]
  - Eructation [Recovered/Resolved]
  - Dyspepsia [Unknown]
  - Vomiting [Unknown]
  - Abdominal pain [Recovered/Resolved]

NARRATIVE: CASE EVENT DATE: 20201212
